FAERS Safety Report 9126588 (Version 1)
Quarter: 2013Q1

REPORT INFORMATION
  Report Type: Spontaneous
  Country: SE (occurrence: SE)
  Receive Date: 20130228
  Receipt Date: 20130228
  Transmission Date: 20140127
  Serious: Yes (Other)
  Sender: FDA-Public Use
  Company Number: SE-ACCORD-016570

PATIENT
  Age: 50 Year
  Sex: Female

DRUGS (5)
  1. TACROLIMUS [Suspect]
     Indication: TRANSPLANT
     Dates: end: 201110
  2. METHYLPHENIDATE [Concomitant]
     Indication: ATTENTION DEFICIT/HYPERACTIVITY DISORDER
  3. MYCOPHENOLATE MOFETIL [Concomitant]
     Indication: TRANSPLANT
  4. THYMOGLOBULINE [Concomitant]
  5. INSULIN [Concomitant]
     Dosage: 35 U/DAY (0.66 U/KG/DAY)

REACTIONS (3)
  - Peripheral sensorimotor neuropathy [Recovering/Resolving]
  - Increased insulin requirement [Recovered/Resolved]
  - Off label use [Unknown]
